FAERS Safety Report 9208932 (Version 1)
Quarter: 2013Q2

REPORT INFORMATION
  Report Type: Spontaneous
  Country: US (occurrence: US)
  Receive Date: 20130404
  Receipt Date: 20130404
  Transmission Date: 20140414
  Serious: Yes (Other)
  Sender: FDA-Public Use
  Company Number: US-JNJFOC-20130317264

PATIENT
  Sex: Male

DRUGS (5)
  1. KETOCONAZOLE [Suspect]
     Indication: PROSTATE CANCER METASTATIC
     Route: 048
  2. ASCORBIC ACID [Suspect]
     Indication: PROSTATE CANCER METASTATIC
     Dosage: 21 DAY CYCLE
     Route: 048
  3. HYDROCORTISONE [Suspect]
     Indication: ELECTROLYTE SUBSTITUTION THERAPY
     Dosage: REPLACEMENT DOSE, 20 MG AT 8 AM AND 10 MG AT 4 PM (21 DAY CYCLE)
     Route: 048
  4. GRANULOCYTE MACROPHAGE COLONY STIM FACTOR [Suspect]
     Indication: PROSTATE CANCER METASTATIC
     Dosage: MAXIMUM OF 500 UCG; ON WEEKS 2 AND 3 (21 DAY CYCLE)
     Route: 058
  5. MITOXANTRONE [Suspect]
     Indication: PROSTATE CANCER METASTATIC
     Dosage: UP TO CUMULATIVE DOSE OF 140 MG/M2
     Route: 065

REACTIONS (2)
  - Blood creatinine increased [Unknown]
  - Off label use [Unknown]
